FAERS Safety Report 14250012 (Version 2)
Quarter: 2017Q4

REPORT INFORMATION
  Report Type: Spontaneous
  Country: US (occurrence: US)
  Receive Date: 20171205
  Receipt Date: 20171225
  Transmission Date: 20180321
  Serious: Yes (Life-Threatening, Hospitalization, Other)
  Sender: FDA-Public Use
  Company Number: US-ACCORD-061579

PATIENT
  Age: 67 Year
  Sex: Male

DRUGS (9)
  1. FOLINIC ACID [Concomitant]
     Active Substance: LEUCOVORIN
     Indication: COLORECTAL CANCER STAGE IV
  2. BEVACIZUMAB. [Concomitant]
     Active Substance: BEVACIZUMAB
     Indication: COLORECTAL CANCER STAGE IV
  3. PROCHLORPERAZINE. [Concomitant]
     Active Substance: PROCHLORPERAZINE
  4. FLUOROURACIL. [Suspect]
     Active Substance: FLUOROURACIL
     Indication: COLORECTAL CANCER STAGE IV
     Dosage: 5-FU 400MG/M2 ?46-HOUR CONTINUOUS INFUSION OF 5-FU 2400MG/ M2
  5. ONDANSETRON [Concomitant]
     Active Substance: ONDANSETRON
  6. COUMADIN [Concomitant]
     Active Substance: WARFARIN SODIUM
  7. IRINOTECAN [Suspect]
     Active Substance: IRINOTECAN
     Indication: COLORECTAL CANCER STAGE IV
  8. CARVEDILOL/CARVEDILOL HYDROCHLODRIDE [Concomitant]
  9. LISINOPRIL. [Concomitant]
     Active Substance: LISINOPRIL

REACTIONS (4)
  - Blood bilirubin increased [Recovered/Resolved]
  - Renal impairment [Unknown]
  - Dehydration [Unknown]
  - Leukoencephalopathy [Recovered/Resolved]
